FAERS Safety Report 10034481 (Version 1)
Quarter: 2014Q1

REPORT INFORMATION
  Report Type: Spontaneous
  Country: US (occurrence: None)
  Receive Date: 20140324
  Receipt Date: 20140324
  Transmission Date: 20141002
  Serious: Yes (Other)
  Sender: FDA-Public Use
  Company Number: None

PATIENT
  Age: 52 Year
  Sex: Female
  Weight: 96.62 kg

DRUGS (1)
  1. ESCITALOPRAM 20MG [Suspect]
     Dosage: I PILL
     Route: 048

REACTIONS (3)
  - Product substitution issue [None]
  - Neuropathy peripheral [None]
  - Activities of daily living impaired [None]
